FAERS Safety Report 16771815 (Version 2)
Quarter: 2019Q3

REPORT INFORMATION
  Report Type: Spontaneous
  Country: JP (occurrence: JP)
  Receive Date: 20190904
  Receipt Date: 20190911
  Transmission Date: 20191005
  Serious: Yes (Death, Hospitalization, Other)
  Sender: FDA-Public Use
  Company Number: JP-GILEAD-2019-0408769

PATIENT
  Age: 66 Year
  Sex: Male

DRUGS (14)
  1. EPCLUSA [Suspect]
     Active Substance: SOFOSBUVIR\VELPATASVIR
     Indication: HEPATIC CIRRHOSIS
     Dosage: UNK
     Route: 048
     Dates: start: 20190423, end: 20190515
  2. LIVACT [ISOLEUCINE;LEUCINE;VALINE] [Concomitant]
  3. SELARA [Concomitant]
     Active Substance: EPLERENONE
  4. FEBURIC [Concomitant]
     Active Substance: FEBUXOSTAT
  5. MONILAC [Concomitant]
     Active Substance: LACTULOSE
  6. EPCLUSA [Suspect]
     Active Substance: SOFOSBUVIR\VELPATASVIR
     Indication: HEPATITIS C
  7. LAC-B [Concomitant]
     Active Substance: BIFIDOBACTERIUM SPP.
  8. AMINOLEBAN EN [Concomitant]
     Active Substance: UNSPECIFIED INGREDIENT
  9. URSO [Concomitant]
     Active Substance: URSODIOL
  10. SHAKUYAKUKANZOTO [Concomitant]
     Active Substance: HERBALS
  11. FUROSEMIDE. [Concomitant]
     Active Substance: FUROSEMIDE
  12. SAMSCA [Concomitant]
     Active Substance: TOLVAPTAN
  13. TAKECAB [Concomitant]
     Active Substance: VONOPRAZAN FUMURATE
  14. ZINC. [Concomitant]
     Active Substance: ZINC
     Dosage: 500 MG

REACTIONS (5)
  - Bacterial translocation [Unknown]
  - Coagulopathy [Unknown]
  - Blood bilirubin increased [Unknown]
  - Hepatorenal syndrome [Fatal]
  - Peritonitis bacterial [Unknown]

NARRATIVE: CASE EVENT DATE: 20190507
